FAERS Safety Report 20021754 (Version 1)
Quarter: 2021Q4

REPORT INFORMATION
  Report Type: Report from Study
  Country: US (occurrence: US)
  Receive Date: 20211101
  Receipt Date: 20211101
  Transmission Date: 20220303
  Serious: Yes (Death)
  Sender: FDA-Public Use
  Company Number: US-Taiho Oncology Inc-EU-2021-03409

PATIENT
  Age: 78 Year
  Sex: Male

DRUGS (16)
  1. LONSURF [Suspect]
     Active Substance: TIPIRACIL HYDROCHLORIDE\TRIFLURIDINE
     Indication: Colon cancer
     Dosage: CYCLE UNKNOWN
     Route: 048
     Dates: start: 20210616
  2. AMOXICILLIN [Concomitant]
     Active Substance: AMOXICILLIN
  3. COMPAZINE [Concomitant]
     Active Substance: PROCHLORPERAZINE MALEATE
  4. FERROUS SULFATE [Concomitant]
     Active Substance: FERROUS SULFATE
  5. FLOMAX [Concomitant]
     Active Substance: TAMSULOSIN HYDROCHLORIDE
  6. LIDOCAINE [Concomitant]
     Active Substance: LIDOCAINE
  7. LIPITOR [Concomitant]
     Active Substance: ATORVASTATIN CALCIUM
  8. MEXILITENE [Concomitant]
  9. LOPERAMIDE [Concomitant]
     Active Substance: LOPERAMIDE
  10. VITAMINS [Concomitant]
     Active Substance: VITAMINS
  11. NITROGLYCERIN [Concomitant]
     Active Substance: NITROGLYCERIN
     Dosage: SL
  12. ONDANSETRON [Concomitant]
     Active Substance: ONDANSETRON
  13. SODIUM CHLORIDE [Concomitant]
     Active Substance: SODIUM CHLORIDE
  14. TOPROL XL [Concomitant]
     Active Substance: METOPROLOL SUCCINATE
  15. TYLENOL [Concomitant]
     Active Substance: ACETAMINOPHEN
  16. WARFARIN [Concomitant]
     Active Substance: WARFARIN

REACTIONS (1)
  - Death [Fatal]

NARRATIVE: CASE EVENT DATE: 20211023
